FAERS Safety Report 5393992-8 (Version None)
Quarter: 2007Q3

REPORT INFORMATION
  Report Type: 
  Country: None (occurrence: None)
  Receive Date: 20070723
  Receipt Date: 20070221
  Transmission Date: 20080115
  Serious: No
  Sender: FDA-Public Use
  Company Number: A0632850A

PATIENT
  Age: 70 Year
  Sex: Female

DRUGS (4)
  1. AVANDIA [Suspect]
     Dosage: 8MG PER DAY
     Route: 048
  2. GLUCOPHAGE [Concomitant]
  3. MULTIVITAMIN [Concomitant]
  4. HYZAAR [Concomitant]

REACTIONS (2)
  - WEIGHT INCREASED [None]
  - WEIGHT LOSS POOR [None]
